FAERS Safety Report 7541533-9 (Version None)
Quarter: 2011Q2

REPORT INFORMATION
  Report Type: 
  Country: None (occurrence: None)
  Receive Date: 20110613
  Receipt Date: 20110610
  Transmission Date: 20111010
  Serious: Yes (Other)
  Sender: FDA-Public Use
  Company Number: US-BRISTOL-MYERS SQUIBB COMPANY-15816515

PATIENT
  Sex: Female

DRUGS (8)
  1. NEXIUM [Concomitant]
  2. SPIRIVA [Concomitant]
  3. COUMADIN [Suspect]
     Indication: ATRIAL FIBRILLATION
     Dosage: INTRP + RESTR WITH 2.5 MG(TUE) DOSE INCREASED TO 5MG(WED)+2.5MG DAILY ON FRI,SAT+SUN,5MG ON MON
  4. HYDROCHLOROTHIAZIDE [Concomitant]
  5. MULTAQ [Concomitant]
  6. TOPROL-XL [Concomitant]
  7. ALDACTONE [Concomitant]
  8. VITAMIN B-12 [Concomitant]
     Dosage: B-12 INJECTIONS

REACTIONS (2)
  - INTERNATIONAL NORMALISED RATIO INCREASED [None]
  - OESOPHAGEAL NEOPLASM [None]
